FAERS Safety Report 4706738-0 (Version None)
Quarter: 2005Q2

REPORT INFORMATION
  Report Type: 
  Country: None (occurrence: None)
  Receive Date: 20050629
  Receipt Date: 20050425
  Transmission Date: 20051028
  Serious: No
  Sender: FDA-Public Use
  Company Number: 05P-163-0289953-00

PATIENT
  Age: 56 Year
  Sex: Female
  Weight: 63.5036 kg

DRUGS (9)
  1. HUMIRA [Suspect]
     Indication: RHEUMATOID ARTHRITIS
     Dosage: 40 MG, 1 IN 2 WK, SUBCUTANEOUS
     Route: 058
     Dates: start: 20040101
  2. HUMIRA [Suspect]
     Indication: RHEUMATOID ARTHRITIS
     Dosage: 40 MG, 1 IN 2 WK, SUBCUTANEOUS
     Route: 058
     Dates: start: 20040201
  3. SULFASALAZINE [Concomitant]
  4. SALAZINE [Concomitant]
  5. PEROXICAN [Concomitant]
  6. PREDNISONE TAB [Concomitant]
  7. FELDINE [Concomitant]
  8. RANITIDINE HYDROCHLORIDE [Concomitant]
  9. . [Suspect]

REACTIONS (4)
  - DRUG INEFFECTIVE [None]
  - INJECTION SITE IRRITATION [None]
  - MEDICATION ERROR [None]
  - RHEUMATOID ARTHRITIS [None]
